FAERS Safety Report 25837242 (Version 1)
Quarter: 2025Q3

REPORT INFORMATION
  Report Type: Spontaneous
  Country: EU (occurrence: EU)
  Receive Date: 20250923
  Receipt Date: 20250923
  Transmission Date: 20251021
  Serious: Yes (Death)
  Sender: ABBVIE
  Company Number: EU-ABBVIE-6472150

PATIENT
  Age: 70 Year
  Sex: Male

DRUGS (1)
  1. FOSCARBIDOPA\FOSLEVODOPA [Suspect]
     Active Substance: FOSCARBIDOPA\FOSLEVODOPA
     Indication: Parkinson^s disease
     Route: 058
     Dates: start: 20250710

REACTIONS (6)
  - Death [Fatal]
  - Tremor [Recovering/Resolving]
  - Hallucination [Unknown]
  - Decreased appetite [Unknown]
  - General physical health deterioration [Unknown]
  - Malaise [Unknown]

NARRATIVE: CASE EVENT DATE: 20250101
